FAERS Safety Report 8756637 (Version 1)
Quarter: 2012Q4

REPORT INFORMATION
  Report Type: Report from Study
  Country: US (occurrence: US)
  Receive Date: 20120828
  Receipt Date: 20120828
  Transmission Date: 20130627
  Serious: Yes (Other)
  Sender: FDA-Public Use
  Company Number: US-JNJFOC-20120811381

PATIENT
  Sex: Female
  Weight: 64.86 kg

DRUGS (3)
  1. REMICADE [Suspect]
     Indication: PSORIATIC ARTHROPATHY
     Route: 042
     Dates: start: 2006, end: 2011
  2. METHOTREXATE [Concomitant]
     Route: 065
  3. ENBREL [Concomitant]
     Route: 065

REACTIONS (3)
  - Transient ischaemic attack [Unknown]
  - Surgery [Unknown]
  - Cardiac disorder [Recovered/Resolved]
